FAERS Safety Report 4383275-7 (Version None)
Quarter: 2004Q2

REPORT INFORMATION
  Report Type: 
  Country: None (occurrence: None)
  Receive Date: 20040623
  Receipt Date: 20031103
  Transmission Date: 20050107
  Serious: Yes (Life-Threatening, Hospitalization, Other)
  Sender: FDA-Public Use
  Company Number: FR-BRISTOL-MYERS SQUIBB COMPANY-12425690

PATIENT
  Age: 30 Year
  Sex: Male
  Weight: 55 kg

DRUGS (5)
  1. SUSTIVA [Suspect]
     Route: 048
     Dates: start: 20030915, end: 20031003
  2. FUZEON [Suspect]
     Route: 058
     Dates: start: 20030915, end: 20031003
  3. NORVIR [Concomitant]
     Route: 048
     Dates: start: 20020101, end: 20031003
  4. EPIVIR [Concomitant]
     Route: 048
     Dates: start: 20010101, end: 20031003
  5. AGENERASE [Concomitant]
     Route: 048
     Dates: start: 20020101, end: 20031003

REACTIONS (4)
  - CYTOMEGALOVIRUS INFECTION [None]
  - IMMUNE RECONSTITUTION SYNDROME [None]
  - LOWER RESPIRATORY TRACT INFECTION [None]
  - MYCOBACTERIUM AVIUM COMPLEX INFECTION [None]
